FAERS Safety Report 7029712-0 (Version None)
Quarter: 2010Q4

REPORT INFORMATION
  Report Type: 
  Country: None (occurrence: None)
  Receive Date: 20101005
  Receipt Date: 20101005
  Transmission Date: 20110411
  Serious: Yes (Hospitalization)
  Sender: FDA-Public Use
  Company Number: None

PATIENT
  Sex: Female
  Weight: 51.7 kg

DRUGS (2)
  1. CISPLATIN [Suspect]
     Dosage: 128 MG
  2. ETOPOSIDE [Suspect]
     Dosage: 480 MG

REACTIONS (7)
  - DEHYDRATION [None]
  - DIARRHOEA [None]
  - DYSPHAGIA [None]
  - ODYNOPHAGIA [None]
  - OESOPHAGITIS [None]
  - REGURGITATION [None]
  - VOMITING [None]
